FAERS Safety Report 13467177 (Version 2)
Quarter: 2017Q2

REPORT INFORMATION
  Report Type: Spontaneous
  Country: US (occurrence: US)
  Receive Date: 20170421
  Receipt Date: 20170523
  Transmission Date: 20170830
  Serious: Yes (Other)
  Sender: FDA-Public Use
  Company Number: US-RECORDATI RARE DISEASES-US-R13005-17-00083

PATIENT
  Age: 67 Year
  Sex: Female

DRUGS (1)
  1. PEGANONE [Suspect]
     Active Substance: ETHOTOIN
     Indication: SEIZURE
     Route: 048

REACTIONS (11)
  - Anaphylactic reaction [Unknown]
  - Product label issue [Unknown]
  - Arterial repair [Unknown]
  - Stress [Unknown]
  - Blood pressure increased [Unknown]
  - Product use complaint [Unknown]
  - Product packaging issue [Unknown]
  - Dizziness [Unknown]
  - Cerebral haemorrhage [Unknown]
  - Chest pain [Unknown]
  - Cerebrovascular accident [Unknown]

NARRATIVE: CASE EVENT DATE: 2009
